FAERS Safety Report 6422715-6 (Version None)
Quarter: 2009Q4

REPORT INFORMATION
  Report Type: 
  Country: None (occurrence: None)
  Receive Date: 20091102
  Receipt Date: 20091026
  Transmission Date: 20100525
  Serious: Yes (Hospitalization, Congenital Anomaly)
  Sender: FDA-Public Use
  Company Number: US-JNJFOC-20091007839

PATIENT
  Sex: Male
  Weight: 3.49 kg

DRUGS (3)
  1. TOPAMAX [Suspect]
  2. TOPAMAX [Suspect]
     Indication: DRUG EXPOSURE DURING PREGNANCY
  3. LAMICTAL [Suspect]
     Indication: DRUG EXPOSURE DURING PREGNANCY

REACTIONS (3)
  - ANAEMIA [None]
  - CHORDEE [None]
  - CYST [None]
